FAERS Safety Report 9437378 (Version 2)
Quarter: 2013Q3

REPORT INFORMATION
  Report Type: Report from Study
  Country: CA (occurrence: US)
  Receive Date: 20130802
  Receipt Date: 20130813
  Transmission Date: 20140515
  Serious: Yes (Other)
  Sender: FDA-Public Use
  Company Number: CA-BAYER-2013-092327

PATIENT
  Sex: Female

DRUGS (1)
  1. LEVONORGESTREL [Suspect]
     Route: 015

REACTIONS (18)
  - Allergy to chemicals [None]
  - Alopecia [None]
  - Back pain [None]
  - Chronic sinusitis [None]
  - Bronchitis [None]
  - Asthma [None]
  - Platelet count decreased [Recovered/Resolved]
  - Inflammation [Recovered/Resolved]
  - Benign intracranial hypertension [None]
  - Paraesthesia [None]
  - Paraesthesia [None]
  - Dizziness [None]
  - Somnolence [None]
  - Balance disorder [None]
  - Mobility decreased [None]
  - Feeling drunk [None]
  - Brain oedema [None]
  - Optic nerve injury [None]
